FAERS Safety Report 13084229 (Version 2)
Quarter: 2018Q1

REPORT INFORMATION
  Report Type: Spontaneous
  Country: US (occurrence: US)
  Receive Date: 20170104
  Receipt Date: 20180122
  Transmission Date: 20180508
  Serious: No
  Sender: FDA-Public Use
  Company Number: US-GLAXOSMITHKLINE-US2016193108

PATIENT
  Sex: Male

DRUGS (5)
  1. VENTOLIN HFA [Suspect]
     Active Substance: ALBUTEROL SULFATE
     Indication: CHRONIC OBSTRUCTIVE PULMONARY DISEASE
     Dosage: 2 PUFF(S), PRN
     Route: 055
  2. ANORO ELLIPTA [Suspect]
     Active Substance: UMECLIDINIUM BROMIDE\VILANTEROL TRIFENATATE
     Indication: CHRONIC OBSTRUCTIVE PULMONARY DISEASE
     Dosage: 1 PUFF(S), 1D
     Route: 055
     Dates: start: 2017
  3. ANORO ELLIPTA [Suspect]
     Active Substance: UMECLIDINIUM BROMIDE\VILANTEROL TRIFENATATE
     Indication: DYSPNOEA
  4. NEBULIZED ALBUTEROL [Concomitant]
     Active Substance: ALBUTEROL
  5. PAROXETINE. [Concomitant]
     Active Substance: PAROXETINE

REACTIONS (6)
  - Dizziness [Unknown]
  - Therapeutic response unexpected [Unknown]
  - Cough [Unknown]
  - Device use error [Recovered/Resolved]
  - Product cleaning inadequate [Recovered/Resolved]
  - Wrong technique in device usage process [Unknown]
